FAERS Safety Report 7742665-2 (Version None)
Quarter: 2011Q3

REPORT INFORMATION
  Report Type: 
  Country: None (occurrence: None)
  Receive Date: 20110830
  Receipt Date: 20110824
  Transmission Date: 20111222
  Serious: Yes (Death, Life-Threatening)
  Sender: FDA-Public Use
  Company Number: 2011SP039955

PATIENT
  Age: 27 Year
  Sex: Male

DRUGS (4)
  1. SAPHRIS [Suspect]
     Indication: SUBSTANCE ABUSE
     Dosage: 10 MG;HS;SL
     Route: 060
     Dates: start: 20110101
  2. SAPHRIS [Suspect]
     Indication: BIPOLAR DISORDER
     Dosage: 10 MG;HS;SL
     Route: 060
     Dates: start: 20110101
  3. INSULIN [Concomitant]
  4. TRILEPTAL [Concomitant]

REACTIONS (1)
  - DEATH [None]
